FAERS Safety Report 12796928 (Version 2)
Quarter: 2016Q4

REPORT INFORMATION
  Report Type: Spontaneous
  Country: GR (occurrence: GR)
  Receive Date: 20160930
  Receipt Date: 20161005
  Transmission Date: 20170207
  Serious: Yes (Other)
  Sender: FDA-Public Use
  Company Number: GR-ROCHE-1836455

PATIENT
  Age: 32 Year
  Sex: Male

DRUGS (1)
  1. XOLAIR [Suspect]
     Active Substance: OMALIZUMAB
     Indication: DERMATITIS ALLERGIC
     Route: 065

REACTIONS (4)
  - Product use issue [Unknown]
  - Autoimmune thyroiditis [Unknown]
  - Rash [Not Recovered/Not Resolved]
  - Autoimmune disorder [Unknown]
